FAERS Safety Report 12659865 (Version 2)
Quarter: 2025Q3

REPORT INFORMATION
  Report Type: Report from Study
  Country: US (occurrence: US)
  Receive Date: 20160817
  Receipt Date: 20250725
  Transmission Date: 20251020
  Serious: No
  Sender: TAKEDA
  Company Number: US-SHIRE-2016DX000118

PATIENT
  Sex: Female

DRUGS (13)
  1. ECALLANTIDE [Suspect]
     Active Substance: ECALLANTIDE
     Indication: Hereditary angioedema
  2. ECALLANTIDE [Suspect]
     Active Substance: ECALLANTIDE
  3. DANAZOL [Concomitant]
     Active Substance: DANAZOL
     Indication: Product used for unknown indication
  4. KETAMINE [Concomitant]
     Active Substance: KETAMINE
     Indication: Migraine
  5. OZEMPIC [Concomitant]
     Active Substance: SEMAGLUTIDE
  6. BENADRYL [Concomitant]
     Active Substance: DIPHENHYDRAMINE HYDROCHLORIDE
  7. ALBUTEROL [Concomitant]
     Active Substance: ALBUTEROL
  8. BOTOX [Concomitant]
     Active Substance: ONABOTULINUMTOXINA
  9. ELIQUIS [Concomitant]
     Active Substance: APIXABAN
  10. LEXAPRO [Concomitant]
     Active Substance: ESCITALOPRAM OXALATE
  11. ZOFRAN [Concomitant]
     Active Substance: ONDANSETRON HYDROCHLORIDE
  12. ZYRTEC [Concomitant]
     Active Substance: CETIRIZINE HYDROCHLORIDE
  13. CLONAZEPAM [Concomitant]
     Active Substance: CLONAZEPAM

REACTIONS (2)
  - Sleep apnoea syndrome [Not Recovered/Not Resolved]
  - Hereditary angioedema [Unknown]
